FAERS Safety Report 5949452-6 (Version None)
Quarter: 2008Q4

REPORT INFORMATION
  Report Type: 
  Country: None (occurrence: None)
  Receive Date: 20081112
  Receipt Date: 20081103
  Transmission Date: 20090506
  Serious: Yes (Hospitalization)
  Sender: FDA-Public Use
  Company Number: PHHY2008MX27065

PATIENT
  Age: 73 Year
  Sex: Male

DRUGS (2)
  1. EXFORGE [Suspect]
     Indication: HYPERTENSION
     Dosage: 2 TABLET/DAY
     Dates: start: 20080201
  2. ROFUCAL (HYDROCHLOROTHIAZIDE) [Concomitant]
     Dosage: 2 TABLETS
     Route: 048

REACTIONS (1)
  - CARDIAC PACEMAKER INSERTION [None]
